FAERS Safety Report 6410670-4 (Version None)
Quarter: 2009Q4

REPORT INFORMATION
  Report Type: 
  Country: None (occurrence: None)
  Receive Date: 20091021
  Receipt Date: 20091021
  Transmission Date: 20100525
  Serious: Yes (Hospitalization)
  Sender: FDA-Public Use
  Company Number: None

PATIENT
  Sex: Female
  Weight: 55.5 kg

DRUGS (8)
  1. RITUXAN [Suspect]
     Indication: B-CELL LYMPHOMA
     Dosage: 375 MG/M2 Q 2 WEEKS INTRAVENOUS
     Route: 042
     Dates: start: 20090806, end: 20091012
  2. CYCLOPHOSPHAMIDE [Suspect]
     Indication: B-CELL LYMPHOMA
     Dosage: 750 MG/M2 Q 2 WEEKS INTRAVENOUS
     Route: 042
     Dates: start: 20090806, end: 20091012
  3. DOXORUBICIN HCL [Suspect]
     Indication: B-CELL LYMPHOMA
     Dosage: 50 MG/M2 Q2 WEEKS INTRAVENOUS
     Route: 042
     Dates: start: 20090806, end: 20091012
  4. VINCRISTINE [Suspect]
     Indication: B-CELL LYMPHOMA
     Dosage: 2 MG MAX DOSE Q 2 WEEKS INTRAVENOUS
     Route: 042
     Dates: start: 20090806, end: 20091012
  5. PREDNISONE [Suspect]
     Indication: B-CELL LYMPHOMA
     Dosage: 100 MG DAYS 1-5 Q 2 WEEKS INTRAVENOUS
     Route: 042
     Dates: start: 20090806, end: 20091012
  6. PEGYLATED FILGRASTIM [Suspect]
     Indication: B-CELL LYMPHOMA
     Dosage: 6 MG DAY 2 Q2 WEEKS INTRAVENOUS
     Route: 042
     Dates: start: 20090806, end: 20091012
  7. CITALOPRAM HYDROBROMIDE [Concomitant]
  8. LORAZEPAM [Concomitant]

REACTIONS (8)
  - ABDOMINAL PAIN [None]
  - DECREASED ACTIVITY [None]
  - HYPOPHAGIA [None]
  - LYMPHOPENIA [None]
  - NAUSEA [None]
  - NEUTROPENIA [None]
  - SEPSIS [None]
  - VOMITING [None]
